FAERS Safety Report 5049735-0 (Version None)
Quarter: 2006Q3

REPORT INFORMATION
  Report Type: 
  Country: None (occurrence: None)
  Receive Date: 20060707
  Receipt Date: 20060623
  Transmission Date: 20061208
  Serious: Yes (Other)
  Sender: FDA-Public Use
  Company Number: 2006079745

PATIENT
  Age: 18 Month
  Sex: Female

DRUGS (1)
  1. SUDAFED (PSEUDOEOPHEDRINE) [Suspect]
     Indication: ACCIDENTAL EXPOSURE
     Dosage: AT LEAST 3 TABLETS ONCE, ORAL
     Route: 048
     Dates: start: 20060623, end: 20060623

REACTIONS (6)
  - ACCIDENTAL DRUG INTAKE BY CHILD [None]
  - EAR PAIN [None]
  - EPISTAXIS [None]
  - EYE PAIN [None]
  - HEART RATE INCREASED [None]
  - RESPIRATORY RATE INCREASED [None]
